FAERS Safety Report 8841147 (Version 1)
Quarter: 2012Q4

REPORT INFORMATION
  Report Type: 
  Country: DE (occurrence: DE)
  Receive Date: 20121015
  Receipt Date: 20121015
  Transmission Date: 20130627
  Serious: Yes (Hospitalization)
  Sender: FDA-Public Use
  Company Number: DE-PFIZER INC-2012250331

PATIENT
  Age: 26 Year
  Sex: Male
  Weight: 136 kg

DRUGS (3)
  1. GENOTROPIN [Suspect]
     Indication: GROWTH HORMONE DEFICIENCY
     Dosage: 0.2 mg, 1x/day, 7 injections/week
     Route: 058
     Dates: start: 20080207
  2. HYDROCORTISONE [Concomitant]
     Indication: BLOOD CORTICOTROPHIN DECREASED
     Dosage: UNK
     Dates: start: 20071114
  3. L-THYROXIN [Concomitant]
     Indication: THYROIDITIS
     Dosage: UNK
     Dates: start: 20071114

REACTIONS (1)
  - Road traffic accident [Unknown]
